FAERS Safety Report 15423156 (Version 1)
Quarter: 2018Q3

REPORT INFORMATION
  Report Type: Spontaneous
  Country: IT (occurrence: IT)
  Receive Date: 20180925
  Receipt Date: 20180925
  Transmission Date: 20181010
  Serious: Yes (Hospitalization)
  Sender: FDA-Public Use
  Company Number: IT-ASTRAZENECA-2018SF19959

PATIENT
  Age: 89 Year
  Sex: Female

DRUGS (8)
  1. PLAUNAC [Concomitant]
     Active Substance: OLMESARTAN MEDOXOMIL
     Indication: HYPERTENSION
     Dosage: 10.0MG UNKNOWN
     Route: 048
  2. TRITTICO [Concomitant]
     Active Substance: TRAZODONE HYDROCHLORIDE
     Indication: PSYCHOMOTOR HYPERACTIVITY
     Dosage: 75.0MG UNKNOWN
     Route: 048
  3. LASIX [Concomitant]
     Active Substance: FUROSEMIDE
     Indication: HYPERTENSION
     Dosage: 25.0MG UNKNOWN
     Route: 048
  4. CARDIOASPIRIN [Concomitant]
     Active Substance: ASPIRIN
     Indication: MYOCARDIAL INFARCTION
     Dosage: 100.0MG UNKNOWN
     Route: 048
  5. SIMVASTATIN. [Concomitant]
     Active Substance: SIMVASTATIN
     Indication: HYPERCHOLESTEROLAEMIA
     Route: 048
  6. PANTOPRAZOLE [Concomitant]
     Active Substance: PANTOPRAZOLE
  7. SEROQUEL [Suspect]
     Active Substance: QUETIAPINE FUMARATE
     Indication: NERVOUS SYSTEM DISORDER
     Dosage: 25.0MG UNKNOWN
     Route: 048
     Dates: start: 20180909, end: 20180909
  8. LACIREX [Concomitant]
     Active Substance: LACIDIPINE
     Indication: HYPERTENSION
     Dosage: 1.0DF UNKNOWN
     Route: 048

REACTIONS (4)
  - Somnolence [Recovered/Resolved]
  - Chest discomfort [Recovered/Resolved]
  - Headache [Recovered/Resolved]
  - Palpitations [Recovered/Resolved]

NARRATIVE: CASE EVENT DATE: 20180909
